FAERS Safety Report 6099687-X (Version None)
Quarter: 2009Q1

REPORT INFORMATION
  Report Type: 
  Country: None (occurrence: None)
  Receive Date: 20090303
  Receipt Date: 20090128
  Transmission Date: 20090719
  Serious: No
  Sender: FDA-Public Use
  Company Number: US-BAYER-200910334BCC

PATIENT
  Age: 72 Year
  Sex: Female
  Weight: 59 kg

DRUGS (5)
  1. ALEVE [Suspect]
     Indication: RHEUMATOID ARTHRITIS
     Dosage: TOTAL DAILY DOSE: 440 MG  UNIT DOSE: 220 MG
  2. BENICAR [Concomitant]
  3. PROTONIX [Concomitant]
  4. NASONEX [Concomitant]
  5. LEVOXYL [Concomitant]

REACTIONS (1)
  - BLOOD PRESSURE SYSTOLIC INCREASED [None]
